FAERS Safety Report 7765368-7 (Version None)
Quarter: 2011Q3

REPORT INFORMATION
  Report Type: 
  Country: None (occurrence: None)
  Receive Date: 20110921
  Receipt Date: 20110919
  Transmission Date: 20111222
  Serious: Yes (Death)
  Sender: FDA-Public Use
  Company Number: FR-SANOFI-AVENTIS-2011SA000838

PATIENT
  Age: 63 Year
  Sex: Male

DRUGS (6)
  1. LOVENOX [Suspect]
     Route: 058
     Dates: end: 20101121
  2. ACUPAN [Concomitant]
     Route: 042
     Dates: start: 20101121, end: 20101122
  3. ACETAMINOPHEN [Concomitant]
     Route: 042
     Dates: start: 20101121, end: 20101124
  4. MORPHINE [Concomitant]
     Route: 042
     Dates: start: 20101121, end: 20101123
  5. HEPARIN SODIUM [Suspect]
     Route: 042
     Dates: start: 20101121, end: 20101202
  6. TRAMADOL HCL [Concomitant]
     Route: 048
     Dates: start: 20101121, end: 20101122

REACTIONS (2)
  - HEPARIN-INDUCED THROMBOCYTOPENIA [None]
  - THROMBOSIS [None]
